FAERS Safety Report 5479067-8 (Version None)
Quarter: 2007Q4

REPORT INFORMATION
  Report Type: 
  Country: None (occurrence: None)
  Receive Date: 20071006
  Receipt Date: 20070928
  Transmission Date: 20080405
  Serious: Yes (Other)
  Sender: FDA-Public Use
  Company Number: US-PFIZER INC-2007081213

PATIENT
  Sex: Female
  Weight: 66 kg

DRUGS (4)
  1. DEPO-ESTRADIOL [Suspect]
     Indication: HOT FLUSH
  2. DEPO-ESTRADIOL [Suspect]
     Indication: MOOD SWINGS
  3. LORCET [Concomitant]
     Indication: PAIN
  4. XANAX [Concomitant]
     Indication: DYSTHYMIC DISORDER

REACTIONS (2)
  - INJECTION SITE ABSCESS [None]
  - INJECTION SITE NODULE [None]
